FAERS Safety Report 11610899 (Version 1)
Quarter: 2015Q4

REPORT INFORMATION
  Report Type: Spontaneous
  Country: US (occurrence: None)
  Receive Date: 20151007
  Receipt Date: 20151007
  Transmission Date: 20160304
  Serious: Yes (Hospitalization)
  Sender: FDA-Public Use
  Company Number: None

PATIENT
  Age: 23 Year
  Sex: Male
  Weight: 102.5 kg

DRUGS (2)
  1. OLANZAPINE 20MG SUN [Suspect]
     Active Substance: OLANZAPINE
     Indication: PSYCHOTIC DISORDER
     Dosage: 8 AM
     Route: 048
     Dates: start: 20150821, end: 20150905
  2. GLYCOPYRROLATE 2MG QUALITEST [Suspect]
     Active Substance: GLYCOPYRROLATE
     Indication: DROOLING
     Route: 048
     Dates: start: 20150813, end: 20150905

REACTIONS (4)
  - Pyrexia [None]
  - Agitation [None]
  - Anticholinergic syndrome [None]
  - Delirium [None]

NARRATIVE: CASE EVENT DATE: 20150905
